FAERS Safety Report 7626064-X (Version None)
Quarter: 2011Q3

REPORT INFORMATION
  Report Type: 
  Country: None (occurrence: None)
  Receive Date: 20110713
  Receipt Date: 20110629
  Transmission Date: 20111222
  Serious: Yes (Hospitalization)
  Sender: FDA-Public Use
  Company Number: 2011-2207

PATIENT
  Age: 4 Year
  Sex: Female

DRUGS (1)
  1. INCRELEX [Suspect]
     Indication: FAILURE TO THRIVE
     Dosage: 40 UNITS (40 UNITS, 1 IN 1 D),
     Dates: start: 20100807

REACTIONS (6)
  - TREMOR [None]
  - DYSPNOEA [None]
  - FEAR [None]
  - MALAISE [None]
  - BRUXISM [None]
  - APNOEA [None]
